FAERS Safety Report 4543591-2 (Version None)
Quarter: 2005Q1

REPORT INFORMATION
  Report Type: 
  Country: None (occurrence: None)
  Receive Date: 20050103
  Receipt Date: 20041021
  Transmission Date: 20050727
  Serious: Yes (Life-Threatening)
  Sender: FDA-Public Use
  Company Number: JP-GLAXOSMITHKLINE-B0349258A

PATIENT
  Age: 83 Year
  Sex: Male
  Weight: 48.5 kg

DRUGS (10)
  1. VALTREX [Suspect]
     Indication: HERPES ZOSTER
     Dosage: 1000MG PER DAY
     Route: 048
     Dates: start: 20041005, end: 20041008
  2. ITOROL [Concomitant]
     Indication: MYOCARDIAL ISCHAEMIA
     Dosage: 10MG TWICE PER DAY
     Route: 048
     Dates: end: 20041009
  3. FAMOTIDINE [Concomitant]
     Indication: GASTRITIS
     Dosage: 10MG PER DAY
     Route: 048
  4. KAYEXALATE [Concomitant]
     Indication: HYPERKALAEMIA
     Dosage: 5G PER DAY
     Route: 048
  5. ANPLAG [Concomitant]
     Indication: ATHEROSCLEROSIS OBLITERANS
     Dosage: 100MG TWICE PER DAY
     Route: 048
  6. NORVASC [Concomitant]
     Indication: HYPERTENSION
     Dosage: 5MG PER DAY
     Route: 048
  7. THYRADIN S [Concomitant]
     Indication: HYPERTHYROIDISM
     Dosage: 25MCG PER DAY
     Route: 048
  8. ALOSENN [Concomitant]
     Indication: CONSTIPATION
     Dosage: 1G PER DAY
     Route: 048
  9. CALTAN [Concomitant]
     Indication: HYPERPHOSPHATAEMIA
     Dosage: 3G PER DAY
     Route: 048
  10. BETAMETHASONE VALERATE + GENTAMICIN SULPHATE [Concomitant]

REACTIONS (7)
  - CONVULSION [None]
  - DEPRESSED LEVEL OF CONSCIOUSNESS [None]
  - GAIT DISTURBANCE [None]
  - HALLUCINATION, VISUAL [None]
  - MUSCULAR WEAKNESS [None]
  - SLEEP TALKING [None]
  - VISION BLURRED [None]
